FAERS Safety Report 10964124 (Version 2)
Quarter: 2015Q2

REPORT INFORMATION
  Report Type: Spontaneous
  Country: US (occurrence: US)
  Receive Date: 20150329
  Receipt Date: 20150524
  Transmission Date: 20150821
  Serious: No
  Sender: FDA-Public Use
  Company Number: US-JNJFOC-20130800286

PATIENT
  Sex: Female

DRUGS (7)
  1. GENERIC FENTANYL [Suspect]
     Active Substance: FENTANYL
     Indication: PRODUCT USED FOR UNKNOWN INDICATION
     Route: 062
     Dates: start: 2009
  2. SOMA [Concomitant]
     Active Substance: CARISOPRODOL
     Dosage: FOR 10 YEARS
     Route: 065
  3. PERCOCET [Concomitant]
     Active Substance: ACETAMINOPHEN\OXYCODONE HYDROCHLORIDE
     Dosage: FOR 2 YEARS
     Route: 065
  4. DURAGESIC [Concomitant]
     Active Substance: FENTANYL
     Dosage: FOR 3 YEARS
     Route: 062
  5. PHENERGAN [Concomitant]
     Active Substance: PROMETHAZINE HYDROCHLORIDE
     Dosage: FOR 10 YEARS
     Route: 065
  6. IRON [Concomitant]
     Active Substance: IRON
     Dosage: FOR 2 YEARS
     Route: 065
  7. VITAMIN D [Concomitant]
     Active Substance: CHOLECALCIFEROL
     Dosage: 50,000 UNITS FOR 2 YEARS
     Route: 065

REACTIONS (2)
  - Rash [Recovered/Resolved]
  - Nausea [Recovered/Resolved]
